FAERS Safety Report 6535282-3 (Version None)
Quarter: 2010Q1

REPORT INFORMATION
  Report Type: 
  Country: None (occurrence: None)
  Receive Date: 20100113
  Receipt Date: 20100104
  Transmission Date: 20100710
  Serious: Yes (Hospitalization)
  Sender: FDA-Public Use
  Company Number: US-AMGEN-KDL372348

PATIENT
  Sex: Female

DRUGS (13)
  1. PROCRIT [Suspect]
     Indication: RENAL FAILURE CHRONIC
     Route: 058
  2. PREDNISONE [Concomitant]
  3. DILTIAZEM [Concomitant]
     Route: 048
  4. PLAVIX [Concomitant]
  5. LEVOTHYROXINE SODIUM [Concomitant]
     Route: 048
  6. DIOVAN [Concomitant]
     Route: 048
  7. ATENOLOL [Concomitant]
     Route: 048
  8. PRILOSEC [Concomitant]
     Route: 048
  9. OXYGEN [Concomitant]
  10. TRANQUILIZER [Concomitant]
  11. XANAX [Concomitant]
  12. ALBUTEROL SULATE [Concomitant]
  13. IPRATROPIUM BROMIDE [Concomitant]

REACTIONS (7)
  - CARDIAC FAILURE CONGESTIVE [None]
  - CHEST PAIN [None]
  - INCORRECT STORAGE OF DRUG [None]
  - MALAISE [None]
  - OEDEMA PERIPHERAL [None]
  - PULMONARY FIBROSIS [None]
  - URINARY TRACT INFECTION [None]
